FAERS Safety Report 8727161 (Version 2)
Quarter: 2012Q4

REPORT INFORMATION
  Report Type: 
  Country: US (occurrence: US)
  Receive Date: 20120816
  Receipt Date: 20121022
  Transmission Date: 20130627
  Serious: Yes (Other)
  Sender: FDA-Public Use
  Company Number: US-BAYER-2012-083671

PATIENT
  Age: 48 Year
  Sex: Female
  Weight: 45.35 kg

DRUGS (1)
  1. AVELOX [Suspect]
     Indication: SINUSITIS
     Dosage: 400 mg, QD

REACTIONS (3)
  - Anaphylactic reaction [None]
  - Swelling face [None]
  - Swollen tongue [None]
